FAERS Safety Report 7732165-8 (Version None)
Quarter: 2011Q3

REPORT INFORMATION
  Report Type: 
  Country: None (occurrence: None)
  Receive Date: 20110906
  Receipt Date: 20110825
  Transmission Date: 20111222
  Serious: Yes (Hospitalization)
  Sender: FDA-Public Use
  Company Number: FR-PFIZER INC-2011197317

PATIENT
  Age: 64 Year
  Sex: Male
  Weight: 103 kg

DRUGS (4)
  1. ENALAPRIL MALEATE [Concomitant]
     Indication: HYPERTENSION
     Dosage: 5 MG, 1X/DAY
     Route: 048
  2. ATORVASTATIN CALCIUM [Concomitant]
     Indication: HYPERCHOLESTEROLAEMIA
     Dosage: UNK
     Route: 048
  3. SUNITINIB MALATE [Suspect]
     Indication: RENAL CANCER METASTATIC
     Dosage: 50 MG, UNK
     Route: 048
     Dates: start: 20101220
  4. CELECTOL [Concomitant]
     Indication: HYPERTENSION
     Dosage: 200 MG, 1X/DAY
     Route: 048

REACTIONS (2)
  - RENAL COLIC [None]
  - HAEMORRHAGE URINARY TRACT [None]
